FAERS Safety Report 5115105-X (Version None)
Quarter: 2006Q3

REPORT INFORMATION
  Report Type: 
  Country: None (occurrence: None)
  Receive Date: 20060922
  Receipt Date: 20060916
  Transmission Date: 20061208
  Serious: Yes (Other)
  Sender: FDA-Public Use
  Company Number: 2006105156

PATIENT
  Age: 64 Year
  Sex: Female
  Weight: 63.05 kg

DRUGS (4)
  1. LIPITOR [Suspect]
     Indication: BLOOD CHOLESTEROL INCREASED
     Dosage: 10 MG (10 MG, 1 IN 1 D), ORAL
     Route: 048
     Dates: start: 20040201, end: 20060701
  2. SYNTHROID [Suspect]
  3. EVISTA [Concomitant]
  4. XALATAN [Concomitant]

REACTIONS (6)
  - BLOOD THYROID STIMULATING HORMONE DECREASED [None]
  - DYSSTASIA [None]
  - GAIT DISTURBANCE [None]
  - MUSCULAR WEAKNESS [None]
  - MYALGIA [None]
  - PAIN [None]
